FAERS Safety Report 7208715-7 (Version None)
Quarter: 2011Q1

REPORT INFORMATION
  Report Type: 
  Country: None (occurrence: None)
  Receive Date: 20110104
  Receipt Date: 20101210
  Transmission Date: 20110831
  Serious: No
  Sender: FDA-Public Use
  Company Number: US-B.I. PHARMACEUTICALS,INC./RIDGEFIELD-2010-BP-14223BP

PATIENT
  Age: 82 Year
  Sex: Female

DRUGS (3)
  1. JANUVIA [Concomitant]
     Indication: DIABETES MELLITUS
  2. PRADAXA [Suspect]
     Indication: ATRIAL FIBRILLATION
     Dosage: 300 MG
     Route: 048
     Dates: start: 20101101
  3. B/P MEDICATION [Concomitant]
     Indication: HYPERTENSION

REACTIONS (2)
  - NAUSEA [None]
  - VOMITING [None]
